FAERS Safety Report 7380700-4 (Version None)
Quarter: 2011Q1

REPORT INFORMATION
  Report Type: 
  Country: None (occurrence: None)
  Receive Date: 20110329
  Receipt Date: 20110324
  Transmission Date: 20110831
  Serious: Yes (Other)
  Sender: FDA-Public Use
  Company Number: US-PFIZER INC-2011066650

PATIENT

DRUGS (2)
  1. DILTIAZEM [Interacting]
     Dosage: UNK
  2. TIKOSYN [Suspect]
     Dosage: UNK

REACTIONS (2)
  - DRUG INTERACTION [None]
  - ELECTROCARDIOGRAM QT PROLONGED [None]
